FAERS Safety Report 9725615 (Version 1)
Quarter: 2013Q4

REPORT INFORMATION
  Report Type: Spontaneous
  Country: US (occurrence: US)
  Receive Date: 20131203
  Receipt Date: 20131203
  Transmission Date: 20140711
  Serious: No
  Sender: FDA-Public Use
  Company Number: US-BAYER-2013-138957

PATIENT
  Age: 33 Year
  Sex: Female

DRUGS (1)
  1. MIRENA [Suspect]
     Indication: CONTRACEPTION
     Dosage: 20 MCG/24HR, CONT
     Route: 015
     Dates: start: 2013, end: 20131101

REACTIONS (7)
  - Weight increased [None]
  - Genital rash [None]
  - Arthralgia [Recovered/Resolved]
  - Vulvovaginal pruritus [None]
  - Anorectal discomfort [None]
  - Vaginal infection [None]
  - Burning sensation [None]
